FAERS Safety Report 10056782 (Version 1)
Quarter: 2014Q2

REPORT INFORMATION
  Report Type: Spontaneous
  Country: US (occurrence: US)
  Receive Date: 20140403
  Receipt Date: 20140403
  Transmission Date: 20141212
  Serious: Yes (Other)
  Sender: FDA-Public Use
  Company Number: PHHY2014US039251

PATIENT
  Sex: Female

DRUGS (3)
  1. METOPROLOL [Suspect]
     Dosage: UNK UKN, UNK
  2. METOPROLOL TARTRATE [Suspect]
     Dosage: UNK UKN, UNK
  3. TOPROL XL [Suspect]
     Dosage: UNK UKN, UNK
     Dates: end: 20140320

REACTIONS (4)
  - Blood pressure increased [Not Recovered/Not Resolved]
  - Tremor [Recovered/Resolved]
  - Feeling abnormal [Recovered/Resolved]
  - Flushing [Recovered/Resolved]
